FAERS Safety Report 21748282 (Version 1)
Quarter: 2022Q4

REPORT INFORMATION
  Report Type: Spontaneous
  Country: US (occurrence: US)
  Receive Date: 20221219
  Receipt Date: 20221219
  Transmission Date: 20230112
  Serious: No
  Sender: FDA-Public Use
  Company Number: US-BAYER-2022A171588

PATIENT
  Age: 65 Year
  Sex: Male

DRUGS (1)
  1. MIRALAX [Suspect]
     Active Substance: POLYETHYLENE GLYCOL 3350
     Dosage: 1 CAP OF POWDER DISSOLVE IN LIQUID
     Route: 048
     Dates: start: 20221215, end: 20221215

REACTIONS (1)
  - Expired product administered [None]

NARRATIVE: CASE EVENT DATE: 20221215
